FAERS Safety Report 6829624-9 (Version None)
Quarter: 2010Q3

REPORT INFORMATION
  Report Type: 
  Country: None (occurrence: None)
  Receive Date: 20100709
  Receipt Date: 20070414
  Transmission Date: 20110219
  Serious: No
  Sender: FDA-Public Use
  Company Number: US-PFIZER INC-2007015020

PATIENT
  Sex: Female
  Weight: 70.31 kg

DRUGS (1)
  1. CHANTIX [Suspect]
     Indication: SMOKING CESSATION THERAPY
     Dates: start: 20070101

REACTIONS (3)
  - BREAST DISORDER [None]
  - BREAST PAIN [None]
  - BREAST TENDERNESS [None]
